FAERS Safety Report 15311028 (Version 1)
Quarter: 2018Q3

REPORT INFORMATION
  Report Type: Report from Study
  Country: US (occurrence: US)
  Receive Date: 20180823
  Receipt Date: 20180823
  Transmission Date: 20181010
  Serious: Yes (Other)
  Sender: FDA-Public Use
  Company Number: US-ROCHE-2170940

PATIENT
  Age: 40 Year
  Sex: Female

DRUGS (1)
  1. XOLAIR [Suspect]
     Active Substance: OMALIZUMAB
     Indication: ASTHMA
     Dosage: MOST RECENT DOSE ON 15/AUG/2018
     Route: 058

REACTIONS (6)
  - Dyspnoea [Recovering/Resolving]
  - Pruritus [Recovering/Resolving]
  - Flushing [Recovering/Resolving]
  - Throat tightness [Recovering/Resolving]
  - Cough [Recovering/Resolving]
  - Dysphonia [Recovering/Resolving]

NARRATIVE: CASE EVENT DATE: 20180815
